FAERS Safety Report 19415897 (Version 2)
Quarter: 2021Q2

REPORT INFORMATION
  Report Type: Spontaneous
  Country: DE (occurrence: DE)
  Receive Date: 20210615
  Receipt Date: 20210621
  Transmission Date: 20210717
  Serious: Yes (Hospitalization, Other)
  Sender: FDA-Public Use
  Company Number: DE-TEVA-2021-DE-1921423

PATIENT
  Age: 72 Year
  Sex: Female
  Weight: 54.4 kg

DRUGS (1)
  1. IBUPROFEN. [Suspect]
     Active Substance: IBUPROFEN
     Dosage: 600 MG, UP TO 6 PIECES
     Route: 048

REACTIONS (5)
  - Acute kidney injury [Unknown]
  - Product prescribing error [Unknown]
  - Breast pain [Unknown]
  - Paraesthesia [Unknown]
  - Back pain [Unknown]
